FAERS Safety Report 8353288 (Version 2)
Quarter: 2014Q1

REPORT INFORMATION
  Report Type: Spontaneous
  Country: US (occurrence: US)
  Receive Date: 20120125
  Receipt Date: 20140204
  Transmission Date: 20141002
  Serious: Yes (Other)
  Sender: FDA-Public Use
  Company Number: US-JNJFOC-20120108810

PATIENT
  Sex: Female
  Weight: 71.67 kg

DRUGS (7)
  1. DURAGESIC [Suspect]
     Indication: PAIN MANAGEMENT
     Dosage: 25UG/HR + 12UG/HR
     Route: 062
     Dates: start: 2010
  2. OXYCODONE [Concomitant]
     Indication: PAIN
     Route: 048
     Dates: start: 2007
  3. SOMA [Concomitant]
     Indication: PAIN
     Route: 048
     Dates: start: 2007
  4. ATIVAN [Concomitant]
     Indication: PAIN
     Route: 048
     Dates: start: 2007
  5. PRISTIQ [Concomitant]
     Indication: PAIN
     Route: 048
     Dates: start: 2007
  6. CELEBREX [Concomitant]
     Indication: PAIN
     Route: 048
     Dates: start: 2007
  7. LYRICA [Concomitant]
     Indication: FIBROMYALGIA
     Route: 048
     Dates: start: 2007

REACTIONS (8)
  - Amnesia [Not Recovered/Not Resolved]
  - Drug withdrawal syndrome [Recovered/Resolved]
  - Vision blurred [Not Recovered/Not Resolved]
  - Tremor [Recovered/Resolved]
  - Product quality issue [Unknown]
  - Malaise [Recovered/Resolved]
  - Bursitis [Not Recovered/Not Resolved]
  - Inappropriate schedule of drug administration [Recovered/Resolved]
